FAERS Safety Report 6143872-5 (Version None)
Quarter: 2009Q2

REPORT INFORMATION
  Report Type: 
  Country: None (occurrence: None)
  Receive Date: 20090405
  Receipt Date: 20090323
  Transmission Date: 20091009
  Serious: Yes (Other)
  Sender: FDA-Public Use
  Company Number: US-PFIZER INC-2009162099

PATIENT
  Sex: Female
  Weight: 55 kg

DRUGS (11)
  1. CHANTIX [Suspect]
     Indication: SMOKING CESSATION THERAPY
     Dosage: 1 MG, 2X/DAY
     Route: 048
     Dates: start: 20090106, end: 20090106
  2. ESKALITH [Concomitant]
     Indication: BIPOLAR DISORDER
     Dosage: 450 MG, 2X/DAY
     Route: 048
  3. SEROQUEL [Concomitant]
     Indication: INSOMNIA
     Dosage: 25 MG, 1X/DAY
     Route: 048
  4. LEVOXYL [Concomitant]
     Indication: HYPOTHYROIDISM
     Dosage: 75 UG, 1X/DAY
     Route: 048
  5. SPIRIVA [Concomitant]
     Indication: ASTHMA
     Dosage: 1 PUFF DAILY
     Route: 055
  6. VENTOLIN [Concomitant]
     Indication: ASTHMA
     Dosage: 2 PUFFS EVERY 4 HOURS WHEN NEEDED
     Route: 055
  7. SYMBICORT [Concomitant]
     Indication: ASTHMA
     Dosage: 1 PUFF TWICE DAILY
  8. VASOTEC [Concomitant]
     Indication: HYPERTENSION
     Dosage: UNK
  9. MULTI-VITAMINS [Concomitant]
     Dosage: UNK
  10. PERCOCET [Concomitant]
     Indication: PAIN
     Dosage: 1-2 EVERY 4-6 HOURS WHEN NEEDED
     Route: 048
  11. ATIVAN [Concomitant]
     Dosage: 1 MG, EVERY 8 HOURS
     Route: 048

REACTIONS (3)
  - ANXIETY [None]
  - DYSPNOEA [None]
  - PARANOIA [None]
